FAERS Safety Report 10231970 (Version 1)
Quarter: 2014Q2

REPORT INFORMATION
  Report Type: Spontaneous
  Country: US (occurrence: US)
  Receive Date: 20140612
  Receipt Date: 20140612
  Transmission Date: 20141212
  Serious: No
  Sender: FDA-Public Use
  Company Number: US-009507513-1405USA014674

PATIENT
  Age: 30 Year
  Sex: Male

DRUGS (1)
  1. PRINIVIL [Suspect]
     Indication: HYPERTENSION
     Dosage: 1 TABLET ONCE DAILY/1 DAILY, QD
     Route: 048
     Dates: start: 201305

REACTIONS (2)
  - Amphetamines positive [Recovering/Resolving]
  - Panic reaction [Recovering/Resolving]
